FAERS Safety Report 6633886-0 (Version None)
Quarter: 2010Q1

REPORT INFORMATION
  Report Type: 
  Country: None (occurrence: None)
  Receive Date: 20100315
  Receipt Date: 20100310
  Transmission Date: 20100710
  Serious: Yes (Other)
  Sender: FDA-Public Use
  Company Number: US-ROXANE LABORATORIES, INC.-2010-RO-00251RO

PATIENT
  Age: 29 Year
  Sex: Female

DRUGS (4)
  1. PREDNISONE [Suspect]
     Indication: PEMPHIGOID
     Dosage: 60 MG
  2. DAPSONE [Suspect]
     Indication: PEMPHIGOID
     Dosage: 100 MG
     Dates: start: 19981101, end: 20000201
  3. DAPSONE [Suspect]
     Dosage: 200 MG
     Dates: start: 20000201
  4. IMMUNE GLOBULIN NOS [Concomitant]
     Indication: PEMPHIGOID
     Route: 042
     Dates: start: 20000401, end: 20020101

REACTIONS (7)
  - ADVERSE DRUG REACTION [None]
  - APHONIA [None]
  - DRUG INEFFECTIVE [None]
  - HAEMOLYTIC ANAEMIA [None]
  - INSOMNIA [None]
  - PEMPHIGOID [None]
  - PSYCHIATRIC SYMPTOM [None]
